FAERS Safety Report 8927783 (Version 1)
Quarter: 2012Q4

REPORT INFORMATION
  Report Type: 
  Country: CA (occurrence: CA)
  Receive Date: 20121127
  Receipt Date: 20121127
  Transmission Date: 20130627
  Serious: Yes (Other)
  Sender: FDA-Public Use
  Company Number: CA-BAYER-2012-123922

PATIENT
  Age: 61 Year
  Sex: Female

DRUGS (2)
  1. BETASERON [Suspect]
     Indication: MULTIPLE SCLEROSIS
     Dosage: UNK
     Dates: start: 20000427
  2. CHOLESTEROL MEDICATION [Concomitant]

REACTIONS (5)
  - Unevaluable event [None]
  - Chills [None]
  - Hyperhidrosis [None]
  - Tremor [None]
  - Asthenia [None]
